FAERS Safety Report 24545386 (Version 1)
Quarter: 2024Q4

REPORT INFORMATION
  Report Type: Spontaneous
  Country: ZA (occurrence: ZA)
  Receive Date: 20241024
  Receipt Date: 20241024
  Transmission Date: 20250115
  Serious: Yes (Other)
  Sender: BAYER HEALTHCARE PHARMACEUTICALS INC.
  Company Number: ZA-BAYER-2024A151564

PATIENT
  Age: 39 Year
  Sex: Female

DRUGS (14)
  1. DIENOGEST\ESTRADIOL VALERATE [Suspect]
     Active Substance: DIENOGEST\ESTRADIOL VALERATE
     Dosage: UNK UNK, QD
     Route: 048
  2. Coryx [Concomitant]
     Route: 048
  3. ACETAMINOPHEN\CODEINE\IBUPROFEN [Concomitant]
     Active Substance: ACETAMINOPHEN\CODEINE\IBUPROFEN
     Route: 048
  4. ASCORBIC ACID\FERRIC PYROPHOSPHATE [Concomitant]
     Active Substance: ASCORBIC ACID\FERRIC PYROPHOSPHATE
     Route: 048
  5. VARENICLINE [Concomitant]
     Active Substance: VARENICLINE
     Dosage: 1 MG
     Route: 048
  6. VARENICLINE [Concomitant]
     Active Substance: VARENICLINE
     Dosage: 0.5 MG
     Route: 048
  7. AUSTIFEN [Concomitant]
     Dosage: 400 MG, TID
  8. Fibtin [Concomitant]
     Dosage: 500 MG
  9. SINUEND [Concomitant]
     Dosage: UNK UNK, TID
     Route: 048
  10. FLUCONAZOLE [Concomitant]
     Active Substance: FLUCONAZOLE
     Dosage: 150 MG, QD
     Route: 048
  11. Novavit plus [Concomitant]
     Route: 048
  12. FLEXOFEND [Concomitant]
     Dosage: 500 MG
     Route: 048
  13. NICOTINE [Concomitant]
     Active Substance: NICOTINE
     Dosage: 1 MG
     Route: 048
  14. AMMONIUM CHLORIDE\DIPHENHYDRAMINE\ETOFYLLINE\SODIUM CITRATE\THEOPHYLLI [Concomitant]
     Active Substance: AMMONIUM CHLORIDE\DIPHENHYDRAMINE\ETOFYLLINE\SODIUM CITRATE\THEOPHYLLINE
     Dosage: 10 ML, TID
     Route: 048

REACTIONS (1)
  - Hysterectomy [None]
